FAERS Safety Report 4779421-3 (Version None)
Quarter: 2005Q3

REPORT INFORMATION
  Report Type: 
  Country: None (occurrence: None)
  Receive Date: 20050923
  Receipt Date: 20050912
  Transmission Date: 20060218
  Serious: Yes (Hospitalization)
  Sender: FDA-Public Use
  Company Number: SUS1-2005-00677

PATIENT
  Sex: Male

DRUGS (3)
  1. ADDERALL XR 10 [Suspect]
     Dosage: SEE IMAGE
     Dates: start: 20050824, end: 20050901
  2. ADDERALL XR 10 [Suspect]
     Dosage: SEE IMAGE
     Dates: start: 20050901, end: 20050901
  3. LEXAPRO [Concomitant]

REACTIONS (8)
  - AGGRESSION [None]
  - AGITATION [None]
  - INTENTIONAL SELF-INJURY [None]
  - LACERATION [None]
  - PSYCHOMOTOR HYPERACTIVITY [None]
  - SELF INJURIOUS BEHAVIOUR [None]
  - SUICIDAL IDEATION [None]
  - SUICIDE ATTEMPT [None]
